FAERS Safety Report 9099239 (Version 1)
Quarter: 2013Q1

REPORT INFORMATION
  Report Type: Spontaneous
  Country: DE (occurrence: DE)
  Receive Date: 20130213
  Receipt Date: 20130213
  Transmission Date: 20140127
  Serious: Yes (Other)
  Sender: FDA-Public Use
  Company Number: DE-EISAI INC-E2007-00979-SPO-DE

PATIENT
  Age: 13 Year
  Sex: Female
  Weight: 37 kg

DRUGS (19)
  1. FYCOMPA [Suspect]
     Indication: EPILEPSY
     Route: 048
     Dates: start: 20121017, end: 20121114
  2. FYCOMPA [Suspect]
     Route: 048
     Dates: start: 20121115, end: 20121115
  3. FYCOMPA [Suspect]
     Route: 048
     Dates: start: 20121116, end: 20121117
  4. ORFIRIL [Concomitant]
     Indication: EPILEPSY
     Dosage: 900 MG/DAY
     Route: 048
     Dates: start: 20121116
  5. KEPPRA [Concomitant]
     Indication: EPILEPSY
     Dosage: 1750 MG/DAY
     Route: 048
     Dates: start: 20121116
  6. FRISIUM [Concomitant]
     Indication: EPILEPSY
     Route: 048
     Dates: start: 20121116, end: 20121206
  7. FRISIUM [Concomitant]
     Dosage: 15 MG/DAY
     Route: 048
     Dates: start: 20121207, end: 20121209
  8. FRISIUM [Concomitant]
     Route: 048
     Dates: start: 20121210
  9. L-THYROXIN [Concomitant]
     Indication: HYPOTHYROIDISM
     Route: 048
  10. VIMPAT [Concomitant]
     Indication: EPILEPSY
     Route: 048
     Dates: start: 20121121, end: 20121123
  11. VIMPAT [Concomitant]
     Route: 048
     Dates: start: 20121124, end: 20121126
  12. VIMPAT [Concomitant]
     Dosage: 75 MG/DAY
     Route: 048
     Dates: start: 20121127, end: 20121129
  13. VIMPAT [Concomitant]
     Dosage: 100 MG/DAY
     Route: 048
     Dates: start: 20121130, end: 20121212
  14. VIMPAT [Concomitant]
     Dosage: 125 MG/DAY
     Route: 048
     Dates: start: 20121213, end: 20121215
  15. VIMPAT [Concomitant]
     Dosage: 150 MG/DAY
     Route: 048
     Dates: start: 20121216, end: 20121218
  16. VIMPAT [Concomitant]
     Dosage: 175 MG/DAY
     Route: 048
     Dates: start: 20121219, end: 20121221
  17. VIMPAT [Concomitant]
     Dosage: 200 MG /DAY
     Route: 048
     Dates: start: 20121222
  18. LAMOTRIGINE [Concomitant]
     Dosage: UNKNOWN
  19. LAMOTRIGINE [Concomitant]
     Dosage: GRADUALLY DC
     Dates: start: 20121018

REACTIONS (3)
  - Convulsion [Recovered/Resolved]
  - Condition aggravated [Recovering/Resolving]
  - Fatigue [Recovered/Resolved]
